FAERS Safety Report 15575961 (Version 5)
Quarter: 2019Q1

REPORT INFORMATION
  Report Type: Spontaneous
  Country: IT (occurrence: IT)
  Receive Date: 20181101
  Receipt Date: 20190221
  Transmission Date: 20190417
  Serious: Yes (Other)
  Sender: FDA-Public Use
  Company Number: IT-MYLANLABS-2018M1081653

PATIENT

DRUGS (12)
  1. RITUXIMAB. [Suspect]
     Active Substance: RITUXIMAB
     Indication: ANTI-PLATELET ANTIBODY
     Dosage: 375 MG/M2, WEEKLY
     Route: 065
  2. RITUXIMAB. [Suspect]
     Active Substance: RITUXIMAB
     Dosage: 375 MILLIGRAM/SQ. METER, QW
     Route: 042
  3. DEFIBROTIDE [Suspect]
     Active Substance: DEFIBROTIDE (BOVINE)
     Indication: VENOOCCLUSIVE DISEASE
     Dosage: UNK
  4. SOLIRIS [Suspect]
     Active Substance: ECULIZUMAB
     Indication: ATYPICAL HAEMOLYTIC URAEMIC SYNDROME
     Dosage: 300 MILLIGRAM, QW (300 MG/ WEEKLY DOSE, STARTED ON DAY +40)
     Route: 042
  5. ECULIZUMAB [Suspect]
     Active Substance: ECULIZUMAB
     Indication: ATYPICAL HAEMOLYTIC URAEMIC SYNDROME
     Dosage: 300 MG/ WEEKLY DOSE, STARTED ON DAY +40
     Route: 065
  6. RITUXIMAB. [Suspect]
     Active Substance: RITUXIMAB
     Indication: ANTI-COMPLEMENT ANTIBODY
     Dosage: UNK
  7. DEFIBROTIDE [Suspect]
     Active Substance: DEFIBROTIDE (BOVINE)
     Dosage: 25 MILLIGRAM/KILOGRAM, QD
     Route: 065
  8. BUSULFAN. [Suspect]
     Active Substance: BUSULFAN
     Indication: STEM CELL TRANSPLANT
     Dosage: 320 MG/M2, QD (80 MG/M2, QID (4/DAY) (TARGETED AUC 85 MGX H/L)
     Route: 042
  9. BUSULFAN. [Suspect]
     Active Substance: BUSULFAN
     Dosage: 80 MILLIGRAM/SQ. METER, QD (80 MG/M2, QID (4/DAY) (TARGETED AUC 85 MGX H/L))
     Route: 042
  10. RITUXIMAB. [Suspect]
     Active Substance: RITUXIMAB
     Dosage: 375 MILLIGRAM/SQ. METER, QW
     Route: 065
  11. DEFIBROTIDE [Suspect]
     Active Substance: DEFIBROTIDE (BOVINE)
     Indication: PROPHYLAXIS
     Dosage: UNK
     Route: 065
  12. DEFIBROTIDE [Suspect]
     Active Substance: DEFIBROTIDE (BOVINE)
     Dosage: 25 MILLIGRAM/KILOGRAM, QD
     Route: 042

REACTIONS (8)
  - Pulmonary oedema [Unknown]
  - Post procedural haemorrhage [Recovered/Resolved]
  - Thrombocytopenia [Recovered/Resolved]
  - Product administration error [Unknown]
  - Bone marrow failure [Recovered/Resolved]
  - Anaemia [Recovered/Resolved]
  - Venoocclusive liver disease [Unknown]
  - Atypical haemolytic uraemic syndrome [Recovered/Resolved]
